FAERS Safety Report 25964963 (Version 4)
Quarter: 2025Q4

REPORT INFORMATION
  Report Type: Spontaneous
  Country: EU (occurrence: EU)
  Receive Date: 20251027
  Receipt Date: 20251211
  Transmission Date: 20260118
  Serious: No
  Sender: PFIZER
  Company Number: EU-PFIZER INC-202500209288

PATIENT

DRUGS (1)
  1. MEDROXYPROGESTERONE [Suspect]
     Active Substance: MEDROXYPROGESTERONE
     Dosage: UNK

REACTIONS (3)
  - Device leakage [Unknown]
  - Device mechanical issue [Unknown]
  - Device occlusion [Unknown]
